FAERS Safety Report 19190856 (Version 1)
Quarter: 2021Q2

REPORT INFORMATION
  Report Type: Spontaneous
  Country: US (occurrence: US)
  Receive Date: 20210428
  Receipt Date: 20210428
  Transmission Date: 20210717
  Serious: No
  Sender: FDA-Public Use
  Company Number: US-GLENMARK PHARMACEUTICALS-2020GMK050062

PATIENT

DRUGS (3)
  1. IRON [Concomitant]
     Active Substance: IRON
     Indication: PRENATAL CARE
     Dosage: UNK
     Route: 065
  2. ALBUTEROL [SALBUTAMOL] [Concomitant]
     Active Substance: ALBUTEROL
     Indication: ASTHMA
     Dosage: UNK, PRN (AS NEEDED)
  3. NORGESTIMATE AND ETHINYL ESTRADIOL TABLETS USP, 0.25 MG/0.035 MG [Suspect]
     Active Substance: ETHINYL ESTRADIOL\NORGESTIMATE
     Indication: ORAL CONTRACEPTION
     Dosage: 1 DOSAGE FORM, OD
     Route: 048
     Dates: start: 202008

REACTIONS (6)
  - Polymenorrhoea [Not Recovered/Not Resolved]
  - Abnormal withdrawal bleeding [Unknown]
  - Drug ineffective [Unknown]
  - Heavy menstrual bleeding [Recovered/Resolved]
  - Product dose omission issue [Unknown]
  - Mood swings [Not Recovered/Not Resolved]

NARRATIVE: CASE EVENT DATE: 2020
